FAERS Safety Report 8613138-X (Version None)
Quarter: 2012Q3

REPORT INFORMATION
  Report Type: 
  Country: None (occurrence: None)
  Receive Date: 20120822
  Receipt Date: 20120731
  Transmission Date: 20120928
  Serious: Yes (Hospitalization)
  Sender: FDA-Public Use
  Company Number: JP-009507513-1208JPN001340

PATIENT

DRUGS (4)
  1. URSO 250 [Concomitant]
     Dosage: DIVIDED DOSE FREQUENCY UNKNOWN
     Route: 048
     Dates: end: 20120530
  2. PEG-INTRON [Suspect]
     Indication: HEPATITIS C
     Dosage: 20 ML, QW
     Route: 058
     Dates: start: 20110602, end: 20120523
  3. REBETOL [Suspect]
     Indication: HEPATITIS C
     Route: 048
     Dates: start: 20110602, end: 20110623
  4. REBETOL [Suspect]
     Dosage: 200 MG, BID
     Route: 048
     Dates: start: 20110624, end: 20120530

REACTIONS (1)
  - PERITONEAL TUBERCULOSIS [None]
